FAERS Safety Report 22136566 (Version 1)
Quarter: 2023Q1

REPORT INFORMATION
  Report Type: Spontaneous
  Country: CA (occurrence: CA)
  Receive Date: 20230324
  Receipt Date: 20230324
  Transmission Date: 20230418
  Serious: Yes (Hospitalization, Other)
  Sender: FDA-Public Use
  Company Number: CA-BAYER-2023A038450

PATIENT
  Age: 20 Year
  Sex: Female

DRUGS (1)
  1. YAZ [Suspect]
     Active Substance: DROSPIRENONE\ETHINYL ESTRADIOL
     Dosage: UNK
     Dates: start: 20100502, end: 20101028

REACTIONS (6)
  - Pulmonary embolism [None]
  - Chest pain [None]
  - Dyspnoea [None]
  - Pulmonary hypertension [None]
  - Musculoskeletal chest pain [None]
  - Haemorrhagic infarction [None]

NARRATIVE: CASE EVENT DATE: 20101001
